FAERS Safety Report 23953112 (Version 4)
Quarter: 2025Q2

REPORT INFORMATION
  Report Type: Spontaneous
  Country: US (occurrence: US)
  Receive Date: 20240608
  Receipt Date: 20250527
  Transmission Date: 20250717
  Serious: Yes (Other)
  Sender: ROCHE
  Company Number: US-ROCHE-3577759

PATIENT
  Age: 20 Year
  Sex: Female
  Weight: 60.78 kg

DRUGS (2)
  1. XOLAIR PFS [Suspect]
     Active Substance: OMALIZUMAB
     Indication: Asthma
     Dosage: STRENGTH:150MG/ML
     Route: 058
     Dates: start: 202404
  2. XOLAIR PFS [Suspect]
     Active Substance: OMALIZUMAB
     Route: 058
     Dates: start: 202301

REACTIONS (3)
  - Anaphylactic reaction [Unknown]
  - Asthma [Unknown]
  - Weight increased [Unknown]

NARRATIVE: CASE EVENT DATE: 20240512
